FAERS Safety Report 8820120 (Version 1)
Quarter: 2012Q4

REPORT INFORMATION
  Report Type: 
  Country: US (occurrence: US)
  Receive Date: 20121001
  Receipt Date: 20121001
  Transmission Date: 20130627
  Serious: Yes (Death)
  Sender: FDA-Public Use
  Company Number: US-ROCHE-1136654

PATIENT
  Sex: Female

DRUGS (1)
  1. RITUXAN [Suspect]
     Indication: MALIGNANT LYMPHOID NEOPLASM
     Dosage: drug indication: Othr malig neoplsms of lymphoid + histiocytic tissue, othr lymphomas, unspec site,
     Route: 065
     Dates: start: 20030425

REACTIONS (1)
  - Death [Fatal]
